FAERS Safety Report 19389687 (Version 1)
Quarter: 2021Q2

REPORT INFORMATION
  Report Type: Spontaneous
  Country: US (occurrence: US)
  Receive Date: 20210608
  Receipt Date: 20210608
  Transmission Date: 20210717
  Serious: Yes (Life-Threatening, Hospitalization, Other)
  Sender: FDA-Public Use
  Company Number: US-LAVIPHARM SA-2112479

PATIENT
  Age: 64 Year
  Sex: Female

DRUGS (1)
  1. CATAPRES?TTS [Suspect]
     Active Substance: CLONIDINE
     Indication: HYPERTENSION
     Route: 062

REACTIONS (3)
  - Coma [Recovered/Resolved]
  - Withdrawal hypertension [Recovered/Resolved]
  - Posterior reversible encephalopathy syndrome [Recovering/Resolving]
